FAERS Safety Report 7124926-3 (Version None)
Quarter: 2010Q4

REPORT INFORMATION
  Report Type: 
  Country: None (occurrence: None)
  Receive Date: 20101129
  Receipt Date: 20101115
  Transmission Date: 20110411
  Serious: Yes (Hospitalization)
  Sender: FDA-Public Use
  Company Number: PHFR2010GB05360

PATIENT
  Sex: Female

DRUGS (2)
  1. CLOZARIL [Suspect]
     Indication: SCHIZOPHRENIA
     Dosage: UNK
     Route: 048
     Dates: start: 20040805
  2. LITHIUM [Suspect]

REACTIONS (4)
  - DIARRHOEA [None]
  - FAECALOMA [None]
  - THERAPEUTIC AGENT TOXICITY [None]
  - VOMITING [None]
